FAERS Safety Report 14045231 (Version 1)
Quarter: 2017Q4

REPORT INFORMATION
  Report Type: Report from Study
  Country: None (occurrence: US)
  Receive Date: 20171005
  Receipt Date: 20171005
  Transmission Date: 20180321
  Serious: Yes (Hospitalization)
  Sender: FDA-Public Use
  Company Number: US-ABBVIE-17K-163-2055321-00

PATIENT
  Age: 34 Year
  Sex: Female

DRUGS (2)
  1. FIORICET [Concomitant]
     Active Substance: ACETAMINOPHEN\BUTALBITAL\CAFFEINE
     Indication: MIGRAINE
  2. HUMIRA [Suspect]
     Active Substance: ADALIMUMAB
     Indication: HIDRADENITIS
     Route: 058
     Dates: start: 20160811

REACTIONS (6)
  - Eclampsia [Recovered/Resolved]
  - Vitamin B12 decreased [Not Recovered/Not Resolved]
  - Live birth [Unknown]
  - Drug effect incomplete [Unknown]
  - Migraine [Not Recovered/Not Resolved]
  - Exposure during pregnancy [Unknown]

NARRATIVE: CASE EVENT DATE: 2017
